FAERS Safety Report 6839818-4 (Version None)
Quarter: 2010Q3

REPORT INFORMATION
  Report Type: 
  Country: None (occurrence: None)
  Receive Date: 20100714
  Receipt Date: 20100707
  Transmission Date: 20110219
  Serious: Yes (Life-Threatening, Hospitalization)
  Sender: FDA-Public Use
  Company Number: DE-BAYER-201031830GPV

PATIENT
  Age: 50 Year
  Sex: Male
  Weight: 80 kg

DRUGS (4)
  1. SORAFENIB OR PLACEBO [Suspect]
     Indication: COLORECTAL CANCER METASTATIC
     Dosage: DAY 2-12
     Route: 048
     Dates: start: 20100127
  2. OXALIPLATIN [Suspect]
     Indication: COLORECTAL CANCER METASTATIC
     Dosage: CYCLES REPEATED ON DAY 15
     Route: 041
     Dates: start: 20100126, end: 20100406
  3. LEUCOVORIN CALCIUM [Suspect]
     Indication: COLORECTAL CANCER METASTATIC
     Dosage: CYCLE REPEATED ON DAY 15
     Route: 041
     Dates: start: 20100126, end: 20100406
  4. FLUOROURACIL [Suspect]
     Indication: COLORECTAL CANCER METASTATIC
     Dosage: DAY 1+2
     Route: 041
     Dates: start: 20100126, end: 20100407

REACTIONS (2)
  - ILEUS [None]
  - SMALL INTESTINAL OBSTRUCTION [None]
